FAERS Safety Report 17217753 (Version 2)
Quarter: 2020Q1

REPORT INFORMATION
  Report Type: Spontaneous
  Country: NL (occurrence: NL)
  Receive Date: 20191231
  Receipt Date: 20200114
  Transmission Date: 20200409
  Serious: Yes (Other)
  Sender: FDA-Public Use
  Company Number: NL-AUROBINDO-AUR-APL-2019-106610

PATIENT
  Age: 43 Year
  Sex: Female

DRUGS (2)
  1. AMOXICILLIN TRIHYDRATE [Suspect]
     Active Substance: AMOXICILLIN
     Indication: PNEUMONIA
  2. AMOXICILLIN TRIHYDRATE [Suspect]
     Active Substance: AMOXICILLIN
     Indication: MACLEOD^S SYNDROME
     Dosage: 3 DOSAGE FORM, ONCE A DAY
     Route: 065
     Dates: start: 20191208

REACTIONS (8)
  - Insomnia [Recovered/Resolved]
  - Fatigue [Recovered/Resolved]
  - Headache [Recovered/Resolved]
  - Pneumonia [Recovered/Resolved]
  - Malaise [Recovered/Resolved]
  - Inflammation [Recovered/Resolved]
  - Dysgeusia [Recovered/Resolved]
  - Drug ineffective [Unknown]
